FAERS Safety Report 5652514-4 (Version None)
Quarter: 2008Q1

REPORT INFORMATION
  Report Type: 
  Country: None (occurrence: None)
  Receive Date: 20080306
  Receipt Date: 20080228
  Transmission Date: 20080703
  Serious: Yes (Death)
  Sender: FDA-Public Use
  Company Number: CN-BAYER-200814019GPV

PATIENT
  Age: 59 Year
  Sex: Male

DRUGS (1)
  1. ULTRAVIST 300 [Suspect]
     Indication: ADRENAL CARCINOMA
     Dosage: TOTAL DAILY DOSE: 93 ML
     Route: 042
     Dates: start: 20080228, end: 20080228

REACTIONS (1)
  - LOSS OF CONSCIOUSNESS [None]
